FAERS Safety Report 10223282 (Version 2)
Quarter: 2014Q2

REPORT INFORMATION
  Report Type: Spontaneous
  Country: US (occurrence: US)
  Receive Date: 20140609
  Receipt Date: 20140609
  Transmission Date: 20141212
  Serious: No
  Sender: FDA-Public Use
  Company Number: US-DRREDDYS-USA/USA/13/0029481

PATIENT
  Age: 68 Year
  Sex: Female

DRUGS (1)
  1. FEXOFENADINE HCL  OTC [Suspect]
     Indication: HYPERSENSITIVITY
     Dosage: 180 MG EVERY OTHER DAY
     Route: 048
     Dates: end: 2013

REACTIONS (1)
  - Hypertension [Not Recovered/Not Resolved]
